FAERS Safety Report 4462542-2 (Version None)
Quarter: 2004Q3

REPORT INFORMATION
  Report Type: 
  Country: None (occurrence: None)
  Receive Date: 20040924
  Receipt Date: 20040909
  Transmission Date: 20050211
  Serious: Yes (Hospitalization)
  Sender: FDA-Public Use
  Company Number: 2004-BP-08101RO

PATIENT
  Age: 49 Year
  Sex: Female

DRUGS (1)
  1. DICLOFENAC SODIUM [Suspect]
     Indication: BACK PAIN
     Dosage: 3 X 75 MG PER INJECTION (ROUTE
     Dates: start: 20020801, end: 20021001

REACTIONS (6)
  - ARTERIAL THROMBOSIS [None]
  - CYANOSIS [None]
  - GLOMERULONEPHRITIS [None]
  - HAEMODIALYSIS [None]
  - HYPERTROPHY [None]
  - RENAL FAILURE ACUTE [None]
